FAERS Safety Report 7024403-4 (Version None)
Quarter: 2010Q3

REPORT INFORMATION
  Report Type: 
  Country: None (occurrence: None)
  Receive Date: 20100929
  Receipt Date: 20100916
  Transmission Date: 20110219
  Serious: Yes (Hospitalization)
  Sender: FDA-Public Use
  Company Number: TPA2010A05076

PATIENT
  Sex: Male

DRUGS (1)
  1. ULORIC [Suspect]
     Dosage: PER ORAL
     Route: 048

REACTIONS (1)
  - MENTAL DISORDER [None]
